FAERS Safety Report 11453562 (Version 1)
Quarter: 2015Q3

REPORT INFORMATION
  Report Type: Spontaneous
  Country: US (occurrence: US)
  Receive Date: 20150831
  Receipt Date: 20150831
  Transmission Date: 20151125
  Serious: No
  Sender: FDA-Public Use
  Company Number: US-ELI_LILLY_AND_COMPANY-US200906006734

PATIENT
  Sex: Female

DRUGS (3)
  1. CYMBALTA [Suspect]
     Active Substance: DULOXETINE HYDROCHLORIDE
     Indication: DEPRESSION
     Dosage: 90 MG, DAILY (1/D)
     Route: 048
     Dates: end: 200906
  2. CYMBALTA [Suspect]
     Active Substance: DULOXETINE HYDROCHLORIDE
     Dosage: 60 MG, DAILY (1/D)
     Route: 048
     Dates: start: 200906, end: 200908
  3. CYMBALTA [Suspect]
     Active Substance: DULOXETINE HYDROCHLORIDE
     Dosage: 30 MG, DAILY (1/D)
     Route: 048
     Dates: start: 200908, end: 20091105

REACTIONS (14)
  - Anxiety [Not Recovered/Not Resolved]
  - Tearfulness [Not Recovered/Not Resolved]
  - Female sexual dysfunction [Recovered/Resolved]
  - Drug withdrawal syndrome [Not Recovered/Not Resolved]
  - Myalgia [Recovering/Resolving]
  - Paraesthesia [Recovered/Resolved]
  - Dizziness [Not Recovered/Not Resolved]
  - Rhinorrhoea [Not Recovered/Not Resolved]
  - Fear [Recovered/Resolved]
  - Head discomfort [Not Recovered/Not Resolved]
  - Nausea [Not Recovered/Not Resolved]
  - Sinusitis [Unknown]
  - Abnormal dreams [Unknown]
  - Sinus congestion [Not Recovered/Not Resolved]

NARRATIVE: CASE EVENT DATE: 2009
